FAERS Safety Report 8555520-5 (Version None)
Quarter: 2012Q3

REPORT INFORMATION
  Report Type: 
  Country: None (occurrence: None)
  Receive Date: 20120731
  Receipt Date: 20110901
  Transmission Date: 20120928
  Serious: No
  Sender: FDA-Public Use
  Company Number: US-ASTRAZENECA-2010SE34877

PATIENT
  Age: 55 Year
  Sex: Female
  Weight: 77.1 kg

DRUGS (4)
  1. SEROQUEL [Suspect]
     Route: 048
     Dates: start: 20100401
  2. SYMBICORT [Concomitant]
  3. KLONOPIN [Concomitant]
  4. SEROQUEL [Suspect]
     Indication: BIPOLAR DISORDER
     Route: 048
     Dates: start: 20050101

REACTIONS (5)
  - BACK INJURY [None]
  - INSOMNIA [None]
  - WEIGHT INCREASED [None]
  - DRUG DOSE OMISSION [None]
  - TREMOR [None]
